FAERS Safety Report 5075419-9 (Version None)
Quarter: 2006Q3

REPORT INFORMATION
  Report Type: 
  Country: None (occurrence: None)
  Receive Date: 20060809
  Receipt Date: 20050725
  Transmission Date: 20061208
  Serious: Yes (Life-Threatening, Hospitalization)
  Sender: FDA-Public Use
  Company Number: US-SANOFI-SYNTHELABO-A03200604809

PATIENT
  Age: 61 Year
  Sex: Male

DRUGS (1)
  1. ELIGARD [Suspect]
     Indication: PROSTATE CANCER
     Route: 058

REACTIONS (2)
  - IIIRD NERVE PARALYSIS [None]
  - PITUITARY HAEMORRHAGE [None]
